FAERS Safety Report 12842766 (Version 2)
Quarter: 2016Q4

REPORT INFORMATION
  Report Type: Spontaneous
  Country: US (occurrence: US)
  Receive Date: 20161013
  Receipt Date: 20161019
  Transmission Date: 20170207
  Serious: No
  Sender: FDA-Public Use
  Company Number: US-PFIZER INC-2016474896

PATIENT
  Sex: Female

DRUGS (1)
  1. LYRICA [Suspect]
     Active Substance: PREGABALIN
     Dosage: UNK

REACTIONS (7)
  - Neuralgia [Unknown]
  - Bacterial infection [Unknown]
  - Intervertebral disc protrusion [Unknown]
  - Herpes zoster [Unknown]
  - Skeletal injury [Unknown]
  - Nerve injury [Unknown]
  - Colitis [Unknown]
